FAERS Safety Report 6732719-1 (Version None)
Quarter: 2010Q2

REPORT INFORMATION
  Report Type: 
  Country: None (occurrence: None)
  Receive Date: 20100519
  Receipt Date: 20100511
  Transmission Date: 20101027
  Serious: Yes (Life-Threatening, Hospitalization)
  Sender: FDA-Public Use
  Company Number: FR-GILEAD-2010-0029124

PATIENT
  Sex: Female

DRUGS (3)
  1. ATRIPLA [Suspect]
     Indication: HIV INFECTION
  2. TRUVADA [Concomitant]
     Indication: HIV INFECTION
  3. EFAVIRENZ [Concomitant]

REACTIONS (3)
  - LIVER TRANSPLANT [None]
  - TRANSAMINASES INCREASED [None]
  - VOMITING [None]
